FAERS Safety Report 9380162 (Version 1)
Quarter: 2013Q3

REPORT INFORMATION
  Report Type: Spontaneous
  Country: US (occurrence: US)
  Receive Date: 20130702
  Receipt Date: 20130702
  Transmission Date: 20140515
  Serious: No
  Sender: FDA-Public Use
  Company Number: US-B.I. PHARMACEUTICALS,INC./RIDGEFIELD-2013-BI-18152BP

PATIENT
  Age: 45 Year
  Sex: Female

DRUGS (1)
  1. COMBIVENT [Suspect]
     Indication: COUGH
     Route: 055
     Dates: start: 20130620

REACTIONS (1)
  - Drug screen positive [Not Recovered/Not Resolved]
